FAERS Safety Report 8810515 (Version 2)
Quarter: 2012Q4

REPORT INFORMATION
  Report Type: Report from Study
  Country: PE (occurrence: PE)
  Receive Date: 20120927
  Receipt Date: 20121016
  Transmission Date: 20130627
  Serious: Yes (Hospitalization)
  Sender: FDA-Public Use
  Company Number: PE-009507513-1207PER000055

PATIENT
  Age: 1 Year
  Sex: Male
  Weight: 8.7 kg

DRUGS (21)
  1. APREPITANT [Suspect]
     Indication: PROPHYLAXIS OF NAUSEA AND VOMITING
     Dosage: 1.04 ml, Once
     Route: 048
     Dates: start: 20120623, end: 20120623
  2. APREPITANT [Suspect]
     Dosage: 0.7 ml, qd
     Route: 048
     Dates: start: 20120624, end: 20120625
  3. APREPITANT [Suspect]
     Dosage: 1.07 ml, Once
     Dates: start: 20120719, end: 20120719
  4. APREPITANT [Suspect]
     Dosage: 0.71 ml, qd
     Dates: start: 20120720, end: 20120721
  5. APREPITANT [Suspect]
     Dosage: 1.08 ml, Once
     Dates: start: 20120810, end: 20120810
  6. APREPITANT [Suspect]
     Dosage: 0.72 ml, qd
     Dates: start: 20120811, end: 20120812
  7. APREPITANT [Suspect]
     Dosage: 1.15 ml, Once
     Dates: start: 20120905, end: 20120905
  8. APREPITANT [Suspect]
     Dosage: 0.77 ml, qd
     Dates: start: 20120906, end: 20120907
  9. ONDANSETRON [Suspect]
     Indication: PROPHYLAXIS OF NAUSEA AND VOMITING
     Dosage: 4 mg, Once
     Route: 042
     Dates: start: 20120623, end: 20120623
  10. ONDANSETRON [Suspect]
     Dosage: 4 mg, qpm
     Dates: start: 20120719, end: 20120720
  11. ONDANSETRON [Suspect]
     Dosage: 4 mg, qam
     Dates: start: 20120810, end: 20120812
  12. ONDANSETRON [Suspect]
     Dosage: 6 mg, qam
     Dates: start: 20120905, end: 20120906
  13. DEXAMETHASONE [Suspect]
     Dosage: 10 ml, qam
     Route: 048
     Dates: start: 20120530, end: 20120601
  14. CYCLOPHOSPHAMIDE [Suspect]
     Indication: CHEMOTHERAPY
     Dosage: 350 mg, qd
     Route: 042
     Dates: start: 20120623, end: 20120623
  15. DOXORUBICIN [Suspect]
     Indication: CHEMOTHERAPY
     Dosage: 10.9 mg, qd
     Route: 042
     Dates: start: 20120623, end: 20120624
  16. VINCRISTINE SULFATE [Suspect]
     Indication: CHEMOTHERAPY
     Dosage: 0.6 mg, qd
     Route: 042
     Dates: start: 20120905, end: 20120905
  17. DACTINOMYCIN [Suspect]
     Indication: CHEMOTHERAPY
     Dosage: 500 mg, qd
     Route: 042
     Dates: start: 20120905, end: 20120906
  18. SODIUM CHLORIDE [Concomitant]
     Indication: CHEMOTHERAPY
     Dosage: 100 ml, qd
     Route: 042
     Dates: start: 20120623, end: 20120623
  19. DEXAMETHASONE [Concomitant]
     Indication: PROPHYLAXIS
     Dosage: 2 mg, qd
     Route: 042
     Dates: start: 20120623, end: 20120624
  20. FILGRASTIM [Concomitant]
     Indication: PROPHYLAXIS
     Dosage: 90 Microgram, qd
     Route: 058
     Dates: start: 20120625, end: 20120629
  21. VINCRISTINE SULFATE [Concomitant]
     Indication: CHEMOTHERAPY
     Dosage: 0.45 mg, qd
     Route: 042
     Dates: start: 20120623, end: 20120623

REACTIONS (2)
  - Febrile neutropenia [Recovered/Resolved]
  - Febrile neutropenia [Recovered/Resolved]
